FAERS Safety Report 8842201 (Version 1)
Quarter: 2012Q4

REPORT INFORMATION
  Report Type: 
  Country: BR (occurrence: BR)
  Receive Date: 20121016
  Receipt Date: 20121016
  Transmission Date: 20130627
  Serious: Yes (Other)
  Sender: FDA-Public Use
  Company Number: BR-AMGEN-BRASP2012065764

PATIENT
  Age: 61 Year
  Sex: Female
  Weight: 63 kg

DRUGS (7)
  1. ENBREL [Suspect]
     Indication: RHEUMATOID ARTHRITIS
     Dosage: 50 mg, weekly
     Route: 058
     Dates: start: 201005, end: 2011
  2. ENBREL [Suspect]
     Dosage: 50 mg, qwk
     Route: 058
     Dates: start: 2011
  3. METHOTREXATE [Concomitant]
     Dosage: 7.5 mg (3 tablets per week), 2x/week
     Route: 048
  4. MICARDIS [Concomitant]
     Dosage: 40mg/5mg, one tablet once daily
     Route: 048
  5. CALTRATE                           /00944201/ [Concomitant]
     Dosage: 600 mg, 1x/day
     Route: 048
  6. CHLORHEXIDINE [Concomitant]
     Dosage: 20 mg, 1x/day
     Route: 048
  7. VYTORIN [Concomitant]
     Dosage: 10/20mg once daily
     Route: 048

REACTIONS (1)
  - Rheumatoid arthritis [Unknown]
